FAERS Safety Report 9361816 (Version 2)
Quarter: 2013Q3

REPORT INFORMATION
  Report Type: Report from Study
  Country: US (occurrence: US)
  Receive Date: 20130621
  Receipt Date: 20130902
  Transmission Date: 20140515
  Serious: Yes (Hospitalization)
  Sender: FDA-Public Use
  Company Number: US-BRISTOL-MYERS SQUIBB COMPANY-19012897

PATIENT
  Age: 54 Year
  Sex: Male
  Weight: 71.8 kg

DRUGS (2)
  1. IPILIMUMAB [Suspect]
     Indication: MALIGNANT MELANOMA
     Dosage: TOTAL DOSE:817MG?LAST DOSE ON 8MAR2013
     Route: 042
     Dates: start: 20110225
  2. SYNTHROID [Concomitant]
     Route: 048

REACTIONS (2)
  - Hyperthyroidism [Recovering/Resolving]
  - Atrial fibrillation [Recovering/Resolving]
